FAERS Safety Report 4726561-0 (Version None)
Quarter: 2005Q3

REPORT INFORMATION
  Report Type: 
  Country: None (occurrence: None)
  Receive Date: 20050726
  Receipt Date: 20050718
  Transmission Date: 20060218
  Serious: Yes (Hospitalization, Other)
  Sender: FDA-Public Use
  Company Number: 220003M05FRA

PATIENT
  Age: 8 Year
  Sex: Male
  Weight: 19 kg

DRUGS (1)
  1. SAIZEN [Suspect]
     Indication: GROWTH HORMONE DEFICIENCY
     Dosage: 0.035 MG/KG, 1 IN 1 DAYS
     Dates: start: 20041124, end: 20050401

REACTIONS (1)
  - ACUTE LYMPHOCYTIC LEUKAEMIA [None]
